FAERS Safety Report 20391839 (Version 2)
Quarter: 2022Q1

REPORT INFORMATION
  Report Type: Spontaneous
  Country: DE (occurrence: None)
  Receive Date: 20220128
  Receipt Date: 20220318
  Transmission Date: 20220423
  Serious: Yes (Other)
  Sender: FDA-Public Use
  Company Number: DE-Merck Healthcare KGaA-9295688

PATIENT
  Age: 0 Year
  Sex: Female
  Weight: 3 kg

DRUGS (1)
  1. MAVENCLAD [Suspect]
     Active Substance: CLADRIBINE
     Indication: Relapsing-remitting multiple sclerosis

REACTIONS (1)
  - Foetal heart rate increased [Recovered/Resolved]

NARRATIVE: CASE EVENT DATE: 20210907
